FAERS Safety Report 18440526 (Version 1)
Quarter: 2020Q4

REPORT INFORMATION
  Report Type: Spontaneous
  Country: US (occurrence: US)
  Receive Date: 20201029
  Receipt Date: 20201029
  Transmission Date: 20210114
  Serious: Yes (Hospitalization)
  Sender: FDA-Public Use
  Company Number: None

PATIENT
  Sex: Female

DRUGS (16)
  1. OMEGA-3-ACID, [Concomitant]
  2. ATENOLOL, [Concomitant]
  3. ESBRIET [Suspect]
     Active Substance: PIRFENIDONE
     Indication: IDIOPATHIC PULMONARY FIBROSIS
     Dosage: ?          OTHER DOSE:3 TABS;?
     Route: 048
     Dates: start: 20200723
  4. VITAMIN B-1, [Concomitant]
  5. HUMLIN, [Concomitant]
  6. PANTOPRAZOLE, [Concomitant]
  7. LISINOPRIL, [Concomitant]
  8. FUROSEMIDE, [Concomitant]
  9. CARTIA XT, [Concomitant]
  10. PREDNISONE, [Concomitant]
  11. VITAMIN B-2, [Concomitant]
  12. MULTI-VITAMIN, [Concomitant]
  13. ATORVASTATIN, [Concomitant]
  14. XARELTO, [Concomitant]
  15. METFORMIN, [Concomitant]
  16. PRADAXA [Concomitant]
     Active Substance: DABIGATRAN ETEXILATE MESYLATE

REACTIONS (3)
  - Diarrhoea [None]
  - Headache [None]
  - Arrhythmia [None]
